FAERS Safety Report 6648151-5 (Version None)
Quarter: 2010Q1

REPORT INFORMATION
  Report Type: 
  Country: None (occurrence: None)
  Receive Date: 20100324
  Receipt Date: 20100311
  Transmission Date: 20100710
  Serious: Yes (Other)
  Sender: FDA-Public Use
  Company Number: PT-ELI_LILLY_AND_COMPANY-PT201002004551

PATIENT
  Age: 45 Year
  Sex: Female

DRUGS (3)
  1. CYMBALTA [Suspect]
     Indication: DEPRESSION
     Dosage: 60 MG, DAILY (1/D)
     Route: 048
     Dates: start: 20090901, end: 20100101
  2. BROMAZEPAM [Concomitant]
     Indication: ANXIETY
     Dosage: 0.5 X 1.5G, 3/D
  3. TRAZODONE HCL [Concomitant]
     Indication: SLEEP DISORDER
     Dosage: 150 MG, EACH EVENING

REACTIONS (2)
  - ALOPECIA [None]
  - MITRAL VALVE INCOMPETENCE [None]
